FAERS Safety Report 4950333-5 (Version None)
Quarter: 2006Q1

REPORT INFORMATION
  Report Type: 
  Country: None (occurrence: None)
  Receive Date: 20060322
  Receipt Date: 20060316
  Transmission Date: 20060701
  Serious: Yes (Hospitalization)
  Sender: FDA-Public Use
  Company Number: JP-GILEAD-2006-0009331

PATIENT
  Sex: Male

DRUGS (2)
  1. HEPSERA [Suspect]
     Indication: HEPATIC CIRRHOSIS
     Route: 048
  2. ZEFFIX [Concomitant]

REACTIONS (1)
  - HYPERAMMONAEMIA [None]
